FAERS Safety Report 5210871-7 (Version None)
Quarter: 2007Q1

REPORT INFORMATION
  Report Type: 
  Country: None (occurrence: None)
  Receive Date: 20070117
  Receipt Date: 20070108
  Transmission Date: 20070707
  Serious: Yes (Hospitalization)
  Sender: FDA-Public Use
  Company Number: GB-PFIZER INC-2007003595

PATIENT
  Sex: Female
  Weight: 77 kg

DRUGS (3)
  1. SU-011,248 [Suspect]
     Indication: COLORECTAL CANCER METASTATIC
     Route: 048
  2. IRINOTECAN HCL [Suspect]
     Indication: COLORECTAL CANCER METASTATIC
     Route: 042
  3. FLUOROURACIL [Suspect]
     Indication: COLORECTAL CANCER METASTATIC
     Dosage: DAILY DOSE:5320
     Route: 042

REACTIONS (3)
  - LETHARGY [None]
  - NEUTROPENIA [None]
  - STOMATITIS [None]
